FAERS Safety Report 5191001-7 (Version None)
Quarter: 2006Q4

REPORT INFORMATION
  Report Type: 
  Country: None (occurrence: None)
  Receive Date: 20061225
  Receipt Date: 20061213
  Transmission Date: 20070319
  Serious: Yes (Disabling, Other)
  Sender: FDA-Public Use
  Company Number: US-BAYER-200616860BWH

PATIENT
  Sex: Female

DRUGS (1)
  1. AVELOX [Suspect]
     Indication: SINUSITIS
     Route: 048
     Dates: start: 20060101, end: 20060101

REACTIONS (12)
  - ABASIA [None]
  - ARTHRITIS [None]
  - BLINDNESS UNILATERAL [None]
  - DIPLOPIA [None]
  - HEADACHE [None]
  - MUSCULOSKELETAL DISCOMFORT [None]
  - PRURITUS [None]
  - RED BLOOD CELL COUNT DECREASED [None]
  - SKIN LESION [None]
  - SWELLING [None]
  - TENDONITIS [None]
  - URTICARIA [None]
